FAERS Safety Report 5191364-2 (Version None)
Quarter: 2006Q4

REPORT INFORMATION
  Report Type: 
  Country: None (occurrence: None)
  Receive Date: 20061219
  Receipt Date: 20061213
  Transmission Date: 20070319
  Serious: Yes (Hospitalization)
  Sender: FDA-Public Use
  Company Number: HQWYE910321FEB06

PATIENT
  Age: 65 Year
  Sex: Male

DRUGS (10)
  1. RAPAMUNE [Suspect]
     Indication: PROPHYLAXIS AGAINST TRANSPLANT REJECTION
     Dosage: 3 MG 1X PER 1 DAY
     Dates: start: 20050727, end: 20060208
  2. ATENOLOL [Concomitant]
  3. OMEPRAZOLE [Concomitant]
  4. RAMIPRIL [Concomitant]
  5. CELLCEPT [Concomitant]
  6. ZENAPAX [Concomitant]
  7. ZENAPAX [Concomitant]
  8. PREDNISOLONE [Concomitant]
  9. CYCLOSPORINE [Concomitant]
  10. CYCLOSPORINE [Concomitant]

REACTIONS (1)
  - ACUTE RESPIRATORY DISTRESS SYNDROME [None]
